FAERS Safety Report 5397997-2 (Version None)
Quarter: 2007Q3

REPORT INFORMATION
  Report Type: 
  Country: None (occurrence: None)
  Receive Date: 20070726
  Receipt Date: 20070719
  Transmission Date: 20080115
  Serious: Yes (Disabling)
  Sender: FDA-Public Use
  Company Number: US-ASTRAZENECA-2007UW17756

PATIENT
  Age: 60 Year
  Sex: Female

DRUGS (15)
  1. ARIMIDEX [Suspect]
     Route: 048
  2. FLONASE [Concomitant]
  3. CLARITIN [Concomitant]
  4. SUDAFED 12 HOUR [Concomitant]
  5. AMBIEN [Concomitant]
  6. ACETAMINOPHEN [Concomitant]
  7. VITAMIN CAP [Concomitant]
  8. VITAMIN E [Concomitant]
  9. FISH OIL [Concomitant]
  10. CALCIUM CHLORIDE [Concomitant]
  11. MAGNESIUM SULFATE [Concomitant]
  12. ZINC [Concomitant]
  13. ADVAIR DISKUS 100/50 [Concomitant]
  14. IBUPROFEN [Concomitant]
  15. MILK PROTEINS [Concomitant]

REACTIONS (7)
  - ARTHRALGIA [None]
  - ARTHROPATHY [None]
  - BONE PAIN [None]
  - FATIGUE [None]
  - FEELING ABNORMAL [None]
  - JOINT CREPITATION [None]
  - WEIGHT DECREASED [None]
